FAERS Safety Report 4312004-8 (Version None)
Quarter: 2004Q1

REPORT INFORMATION
  Report Type: 
  Country: None (occurrence: None)
  Receive Date: 20040305
  Receipt Date: 20031205
  Transmission Date: 20041129
  Serious: No
  Sender: FDA-Public Use
  Company Number: US-GLAXOSMITHKLINE-A0442165A

PATIENT
  Age: 55 Year
  Sex: Male

DRUGS (7)
  1. REQUIP [Suspect]
     Indication: NEUROPATHY
     Dosage: 1MG PER DAY
     Route: 048
     Dates: start: 20031101, end: 20031130
  2. TOPAMAX [Concomitant]
  3. BACLOFEN [Concomitant]
  4. PERCOCET [Concomitant]
  5. ACE INHIBITOR [Concomitant]
  6. BETA BLOCKER [Concomitant]
  7. TRICOR [Concomitant]

REACTIONS (7)
  - DEPRESSION [None]
  - HYPERGLYCAEMIA [None]
  - NAUSEA [None]
  - POLYDIPSIA [None]
  - POLYURIA [None]
  - SOMNOLENCE [None]
  - WEIGHT DECREASED [None]
